FAERS Safety Report 6077459-X (Version None)
Quarter: 2009Q1

REPORT INFORMATION
  Report Type: 
  Country: None (occurrence: None)
  Receive Date: 20090213
  Receipt Date: 20081114
  Transmission Date: 20090719
  Serious: No
  Sender: FDA-Public Use
  Company Number: A0756452A

PATIENT
  Age: 47 Year
  Sex: Female

DRUGS (2)
  1. TREXIMET [Suspect]
     Indication: MIGRAINE
     Dosage: 1TAB UNKNOWN
     Route: 048
     Dates: start: 20081101
  2. ANTIBIOTIC [Concomitant]

REACTIONS (2)
  - DIZZINESS [None]
  - NAUSEA [None]
